FAERS Safety Report 12111455 (Version 2)
Quarter: 2016Q2

REPORT INFORMATION
  Report Type: Report from Study
  Country: US (occurrence: US)
  Receive Date: 20160224
  Receipt Date: 20160421
  Transmission Date: 20160815
  Serious: Yes (Hospitalization)
  Sender: FDA-Public Use
  Company Number: US-ACTELION-A-US2016-130077

PATIENT
  Age: 71 Year
  Sex: Female

DRUGS (2)
  1. MACITENTAN [Suspect]
     Active Substance: MACITENTAN
     Indication: PULMONARY ARTERIAL HYPERTENSION
     Dosage: 10 MG, QD
     Route: 048
     Dates: start: 20141020
  2. ADCIRCA [Concomitant]
     Active Substance: TADALAFIL

REACTIONS (7)
  - Cough [Unknown]
  - Pulmonary hypertension [Unknown]
  - Upper respiratory tract infection [Unknown]
  - Renal failure [Unknown]
  - Weight increased [Unknown]
  - Oedema [Unknown]
  - Fluid retention [Unknown]
